FAERS Safety Report 7095879-1 (Version None)
Quarter: 2010Q4

REPORT INFORMATION
  Report Type: 
  Country: None (occurrence: None)
  Receive Date: 20101111
  Receipt Date: 20101102
  Transmission Date: 20110411
  Serious: Yes (Other)
  Sender: FDA-Public Use
  Company Number: GR-ASTRAZENECA-2010SE52403

PATIENT
  Age: 40 Year
  Sex: Female
  Weight: 55 kg

DRUGS (2)
  1. NOLVADEX [Suspect]
     Indication: BREAST CANCER FEMALE
     Route: 048
     Dates: start: 20100419
  2. ZOLADEX [Concomitant]
     Indication: BREAST CANCER FEMALE
     Route: 058
     Dates: start: 20100419

REACTIONS (3)
  - FLATULENCE [None]
  - OVERDOSE [None]
  - SUICIDE ATTEMPT [None]
